FAERS Safety Report 6337309-0 (Version None)
Quarter: 2009Q3

REPORT INFORMATION
  Report Type: 
  Country: None (occurrence: None)
  Receive Date: 20090828
  Receipt Date: 20090828
  Transmission Date: 20100115
  Serious: No
  Sender: FDA-Public Use
  Company Number: None

PATIENT
  Age: 61 Year
  Sex: Female
  Weight: 90.7194 kg

DRUGS (1)
  1. VANCOMYCIN [Suspect]
     Indication: PERITONITIS
     Dates: start: 20090301, end: 20090401

REACTIONS (2)
  - BALANCE DISORDER [None]
  - OSCILLOPSIA [None]
